FAERS Safety Report 20164923 (Version 2)
Quarter: 2021Q4

REPORT INFORMATION
  Report Type: Spontaneous
  Country: FR (occurrence: FR)
  Receive Date: 20211209
  Receipt Date: 20211214
  Transmission Date: 20220303
  Serious: Yes (Life-Threatening, Hospitalization, Other)
  Sender: FDA-Public Use
  Company Number: FR-ABBVIE-21K-056-4189090-00

PATIENT
  Age: 30 Year
  Sex: Male

DRUGS (7)
  1. VALPROATE SODIUM [Suspect]
     Active Substance: VALPROATE SODIUM
     Indication: Status epilepticus
     Dosage: LOADING DOSE
     Route: 065
  2. LEVETIRACETAM [Suspect]
     Active Substance: LEVETIRACETAM
     Indication: Status epilepticus
     Dosage: LOADING DOSE
     Route: 065
  3. CLONAZEPAM [Suspect]
     Active Substance: CLONAZEPAM
     Indication: Status epilepticus
     Dosage: BOLUS DOSES DURING TRANSPORTATION TO HOSPITAL;
     Route: 040
  4. PROPOFOL [Suspect]
     Active Substance: PROPOFOL
     Indication: Status epilepticus
     Dosage: TITRATION BOLUSES FOR  SUPPRESSION OF BURST EEG  PATTERN
     Route: 040
  5. PHENYTOIN [Suspect]
     Active Substance: PHENYTOIN
     Indication: Status epilepticus
     Dosage: LOADING BOLUS DOSE
     Route: 040
  6. MIDAZOLAM [Suspect]
     Active Substance: MIDAZOLAM
     Indication: Status epilepticus
     Dosage: TITRATION BOLUSES FOR BURST EEG PATTERN;
     Route: 040
  7. TIAGABINE HYDROCHLORIDE [Suspect]
     Active Substance: TIAGABINE HYDROCHLORIDE
     Indication: Anxiety
     Route: 048

REACTIONS (5)
  - Toxicity to various agents [Recovered/Resolved]
  - Overdose [Unknown]
  - Status epilepticus [Recovered/Resolved]
  - Generalised tonic-clonic seizure [Recovered/Resolved]
  - Drug ineffective [Unknown]
